FAERS Safety Report 7935449 (Version 3)
Quarter: 2012Q4

REPORT INFORMATION
  Report Type: 
  Country: US (occurrence: US)
  Receive Date: 20110509
  Receipt Date: 20121004
  Transmission Date: 20130627
  Serious: Yes (Other)
  Sender: FDA-Public Use
  Company Number: US-ASTRAZENECA-2011SE25196

PATIENT
  Age: 55 Year
  Sex: Male

DRUGS (1)
  1. NEXIUM [Suspect]
     Route: 048

REACTIONS (4)
  - Intervertebral disc protrusion [Unknown]
  - Spinal compression fracture [Unknown]
  - Malaise [Unknown]
  - Drug dose omission [Unknown]
